FAERS Safety Report 20627975 (Version 1)
Quarter: 2022Q1

REPORT INFORMATION
  Report Type: Spontaneous
  Country: US (occurrence: None)
  Receive Date: 20220323
  Receipt Date: 20220323
  Transmission Date: 20220423
  Serious: Yes (Hospitalization, Other)
  Sender: FDA-Public Use
  Company Number: None

PATIENT
  Age: 33 Year
  Sex: Female
  Weight: 72.8 kg

DRUGS (2)
  1. PROGESTERONE [Suspect]
     Active Substance: PROGESTERONE
     Indication: Infertility
     Dosage: OTHER FREQUENCY : BID AS DIRECTED;?
     Route: 030
     Dates: start: 20210104, end: 20210531
  2. PROGESTERONE [Suspect]
     Active Substance: PROGESTERONE
     Indication: Infertility
     Dosage: OTHER FREQUENCY : BID AS DIRECTED;?
     Route: 030
     Dates: start: 20210104, end: 20210531

REACTIONS (8)
  - Injection site swelling [None]
  - Injection site pain [None]
  - Injection site abscess [None]
  - Actinomyces test positive [None]
  - Mycobacterium abscessus infection [None]
  - Pre-eclampsia [None]
  - Maternal exposure during pregnancy [None]
  - Abscess rupture [None]

NARRATIVE: CASE EVENT DATE: 20210817
